FAERS Safety Report 9515961 (Version 3)
Quarter: 2013Q3

REPORT INFORMATION
  Report Type: Spontaneous
  Country: JP (occurrence: JP)
  Receive Date: 20130911
  Receipt Date: 20130927
  Transmission Date: 20140515
  Serious: Yes (Death, Other)
  Sender: FDA-Public Use
  Company Number: JP-JNJFOC-20130903137

PATIENT
  Age: 44 Year
  Sex: Male

DRUGS (4)
  1. REMICADE [Suspect]
     Indication: CROHN^S DISEASE
     Route: 042
  2. REMICADE [Suspect]
     Indication: CROHN^S DISEASE
     Route: 042
     Dates: start: 201107
  3. CHEMOTHERAPY [Suspect]
     Indication: RECTAL CANCER
     Route: 065
     Dates: start: 2011, end: 2011
  4. RADIOTHERAPY [Suspect]
     Indication: RECTAL CANCER
     Route: 065
     Dates: start: 2011, end: 2011

REACTIONS (3)
  - Rectal cancer [Fatal]
  - Tuberculosis liver [Recovering/Resolving]
  - Crohn^s disease [Unknown]
